FAERS Safety Report 8229695-1 (Version None)
Quarter: 2012Q1

REPORT INFORMATION
  Report Type: 
  Country: None (occurrence: None)
  Receive Date: 20120322
  Receipt Date: 20120301
  Transmission Date: 20120608
  Serious: Yes (Other)
  Sender: FDA-Public Use
  Company Number: US-ASTRAZENECA-2012SE14713

PATIENT
  Age: 62 Year
  Sex: Female
  Weight: 79 kg

DRUGS (2)
  1. ATACAND [Suspect]
     Indication: HYPERTENSION
     Route: 048
     Dates: end: 20110101
  2. ATENOLOL [Suspect]
     Indication: HYPERTENSION
     Route: 048

REACTIONS (3)
  - DRUG INEFFECTIVE [None]
  - BLOOD PRESSURE INCREASED [None]
  - INAPPROPRIATE SCHEDULE OF DRUG ADMINISTRATION [None]
